FAERS Safety Report 5923953-9 (Version None)
Quarter: 2008Q4

REPORT INFORMATION
  Report Type: 
  Country: None (occurrence: None)
  Receive Date: 20081015
  Receipt Date: 20081001
  Transmission Date: 20090506
  Serious: Yes (Other)
  Sender: FDA-Public Use
  Company Number: PHHY2008JP23205

PATIENT
  Age: 39 Year
  Sex: Female

DRUGS (1)
  1. VISUDYNE [Suspect]
     Indication: CHOROIDAL NEOVASCULARISATION

REACTIONS (3)
  - RETINAL HAEMORRHAGE [None]
  - RETINAL OEDEMA [None]
  - VISUAL ACUITY REDUCED [None]
